FAERS Safety Report 5863443-5 (Version None)
Quarter: 2008Q3

REPORT INFORMATION
  Report Type: 
  Country: None (occurrence: None)
  Receive Date: 20080828
  Receipt Date: 20080822
  Transmission Date: 20090109
  Serious: Yes (Other)
  Sender: FDA-Public Use
  Company Number: DE-PFIZER INC-2008070727

PATIENT
  Age: 77 Year
  Sex: Male

DRUGS (3)
  1. XALATAN [Suspect]
     Indication: GLAUCOMA
     Dosage: TEXT:DAILY
     Route: 047
  2. MARCUMAR [Concomitant]
     Indication: ARRHYTHMIA
     Route: 048
  3. TRUSOPT [Concomitant]
     Route: 047

REACTIONS (1)
  - BLOOD PRESSURE INCREASED [None]
